FAERS Safety Report 19197786 (Version 3)
Quarter: 2021Q3

REPORT INFORMATION
  Report Type: Spontaneous
  Country: CA (occurrence: CA)
  Receive Date: 20210430
  Receipt Date: 20210930
  Transmission Date: 20211014
  Serious: Yes (Hospitalization, Other)
  Sender: FDA-Public Use
  Company Number: CA-TEVA-2021-CA-1904399

PATIENT
  Age: 60 Year
  Sex: Female

DRUGS (15)
  1. CODEINE [Suspect]
     Active Substance: CODEINE
     Indication: PRODUCT USED FOR UNKNOWN INDICATION
     Route: 065
  2. METHOTREXATE. [Suspect]
     Active Substance: METHOTREXATE
     Indication: PRODUCT USED FOR UNKNOWN INDICATION
     Route: 065
  3. REMICADE [Suspect]
     Active Substance: INFLIXIMAB
     Indication: PRODUCT USED FOR UNKNOWN INDICATION
     Route: 065
  4. MESALAZINE [Concomitant]
     Active Substance: MESALAMINE
  5. OMNARIS [Suspect]
     Active Substance: CICLESONIDE
     Indication: SINUSITIS
     Route: 055
  6. CYANOCOBALAMIN. [Concomitant]
     Active Substance: CYANOCOBALAMIN
  7. ESTRADIOL. [Concomitant]
     Active Substance: ESTRADIOL
  8. TRIMEBUTINE [Concomitant]
     Active Substance: TRIMEBUTINE
  9. CEPHALEXIN. [Suspect]
     Active Substance: CEPHALEXIN
     Indication: PRODUCT USED FOR UNKNOWN INDICATION
     Route: 065
  10. PREDNISONE. [Concomitant]
     Active Substance: PREDNISONE
  11. FOLIC ACID. [Concomitant]
     Active Substance: FOLIC ACID
  12. PROMETRIUM [Concomitant]
     Active Substance: PROGESTERONE
  13. TELMISARTAN. [Concomitant]
     Active Substance: TELMISARTAN
  14. BUDESONIDE. [Concomitant]
     Active Substance: BUDESONIDE
  15. WARFARIN [Concomitant]
     Active Substance: WARFARIN

REACTIONS (16)
  - Hypertensive crisis [Not Recovered/Not Resolved]
  - Multiple sclerosis [Not Recovered/Not Resolved]
  - Subclavian vein thrombosis [Not Recovered/Not Resolved]
  - Product use in unapproved indication [Not Recovered/Not Resolved]
  - Pruritus [Not Recovered/Not Resolved]
  - Dyspnoea [Not Recovered/Not Resolved]
  - Migraine [Not Recovered/Not Resolved]
  - Neurological symptom [Not Recovered/Not Resolved]
  - Vomiting [Not Recovered/Not Resolved]
  - Chills [Not Recovered/Not Resolved]
  - Heart rate increased [Not Recovered/Not Resolved]
  - Rash [Not Recovered/Not Resolved]
  - Abscess intestinal [Not Recovered/Not Resolved]
  - Crohn^s disease [Not Recovered/Not Resolved]
  - Chronic sinusitis [Not Recovered/Not Resolved]
  - Lethargy [Not Recovered/Not Resolved]
